FAERS Safety Report 26044568 (Version 1)
Quarter: 2025Q4

REPORT INFORMATION
  Report Type: Spontaneous
  Country: US (occurrence: US)
  Receive Date: 20251114
  Receipt Date: 20251114
  Transmission Date: 20260118
  Serious: Yes (Hospitalization)
  Sender: BLUEPRINT MEDICINES
  Company Number: US-Blueprint Medicines Corporation-2025-AER-02464

PATIENT
  Age: 65 Year
  Sex: Male

DRUGS (1)
  1. AYVAKIT [Suspect]
     Active Substance: AVAPRITINIB
     Indication: Haematopoietic neoplasm
     Route: 048
     Dates: start: 20251003

REACTIONS (2)
  - Periorbital oedema [Unknown]
  - Food intolerance [Unknown]

NARRATIVE: CASE EVENT DATE: 20251101
